FAERS Safety Report 11345497 (Version 2)
Quarter: 2016Q1

REPORT INFORMATION
  Report Type: Spontaneous
  Country: JP (occurrence: JP)
  Receive Date: 20150806
  Receipt Date: 20160115
  Transmission Date: 20160525
  Serious: Yes (Hospitalization)
  Sender: FDA-Public Use
  Company Number: JP-ASTRAZENECA-2015SE74496

PATIENT
  Age: 945 Month
  Sex: Male

DRUGS (10)
  1. MICOMBI [Concomitant]
     Active Substance: HYDROCHLOROTHIAZIDE\TELMISARTAN
     Dosage: AFTER BREAKFAST
     Route: 048
     Dates: start: 20141020
  2. MINIPRESS [Concomitant]
     Active Substance: PRAZOSIN HYDROCHLORIDE
     Dosage: AFTER BREAKFAST AND EVENING MEAL
     Route: 048
     Dates: start: 20141020
  3. CASODEX [Suspect]
     Active Substance: BICALUTAMIDE
     Indication: PROSTATE CANCER
     Route: 048
     Dates: start: 20110610, end: 20140603
  4. ATENOLOL. [Concomitant]
     Active Substance: ATENOLOL
     Route: 048
  5. FAMOTIDINE. [Concomitant]
     Active Substance: FAMOTIDINE
     Route: 048
  6. CASODEX [Suspect]
     Active Substance: BICALUTAMIDE
     Indication: PROSTATE CANCER
     Route: 048
     Dates: start: 20140910
  7. ADALAT CC [Concomitant]
     Active Substance: NIFEDIPINE
     Route: 048
  8. ALDOMET [Concomitant]
     Active Substance: METHYLDOPA
     Route: 048
  9. OMNIPAQUE [Concomitant]
     Active Substance: IOHEXOL
     Dosage: DOSE UNKNOWN
     Route: 065
  10. SEISHOKU [Concomitant]
     Active Substance: SODIUM CHLORIDE
     Dosage: DOSE UNKNOWN
     Route: 065

REACTIONS (1)
  - Fibroadenoma of breast [Recovered/Resolved]

NARRATIVE: CASE EVENT DATE: 201312
